FAERS Safety Report 6596182-6 (Version None)
Quarter: 2010Q1

REPORT INFORMATION
  Report Type: 
  Country: None (occurrence: None)
  Receive Date: 20100219
  Receipt Date: 20100219
  Transmission Date: 20100710
  Serious: Yes (Hospitalization)
  Sender: FDA-Public Use
  Company Number: None

PATIENT
  Age: 72 Year
  Sex: Male

DRUGS (1)
  1. CLOTRIMAZOLE [Suspect]
     Indication: TINEA PEDIS
     Dosage: QS BID TOP
     Route: 061
     Dates: start: 20090519, end: 20090521

REACTIONS (8)
  - CHRONIC OBSTRUCTIVE PULMONARY DISEASE [None]
  - CONFUSIONAL STATE [None]
  - ERYTHEMA [None]
  - HYPOKALAEMIA [None]
  - MALNUTRITION [None]
  - SWELLING [None]
  - TINEA PEDIS [None]
  - WHEEZING [None]
